FAERS Safety Report 6618843-2 (Version None)
Quarter: 2010Q1

REPORT INFORMATION
  Report Type: 
  Country: None (occurrence: None)
  Receive Date: 20100308
  Receipt Date: 20100304
  Transmission Date: 20100710
  Serious: No
  Sender: FDA-Public Use
  Company Number: US-CEPHALON-2010001266

PATIENT
  Sex: Female

DRUGS (2)
  1. FENTORA [Suspect]
     Indication: HEADACHE
     Route: 002
  2. MS CONTIN [Concomitant]

REACTIONS (1)
  - DRUG PRESCRIBING ERROR [None]
